FAERS Safety Report 19659563 (Version 2)
Quarter: 2021Q3

REPORT INFORMATION
  Report Type: Spontaneous
  Country: BE (occurrence: BE)
  Receive Date: 20210805
  Receipt Date: 20210808
  Transmission Date: 20211014
  Serious: No
  Sender: FDA-Public Use
  Company Number: BE-JNJFOC-20210753316

PATIENT
  Sex: Male

DRUGS (3)
  1. DUROGESIC [Suspect]
     Active Substance: FENTANYL
  2. DUROGESIC [Suspect]
     Active Substance: FENTANYL
     Indication: BACK PAIN
     Dosage: STRENGTH: 12.00 MCG/HR
     Route: 062
  3. DUROGESIC [Suspect]
     Active Substance: FENTANYL
     Dosage: STRENGTH: 25 UG/H
     Route: 062

REACTIONS (5)
  - Product adhesion issue [Unknown]
  - Fatigue [Unknown]
  - Underdose [Unknown]
  - Drug ineffective [Unknown]
  - Anxiety [Unknown]
